FAERS Safety Report 8867277 (Version 1)
Quarter: 2012Q4

REPORT INFORMATION
  Report Type: 
  Country: US (occurrence: US)
  Receive Date: 20121025
  Receipt Date: 20121025
  Transmission Date: 20130627
  Serious: No
  Sender: FDA-Public Use
  Company Number: US-AMGEN-USASP2012015921

PATIENT
  Age: 59 Year
  Sex: Female

DRUGS (8)
  1. ENBREL [Suspect]
     Indication: PRODUCT USED FOR UNKNOWN INDICATION
     Dosage: 50 mg, qwk
     Route: 058
  2. METOPROLOL [Concomitant]
     Dosage: 25 mg, UNK
  3. LEVOTHYROXIN [Concomitant]
     Dosage: 100 mug, UNK
  4. NABUMETONE [Concomitant]
     Dosage: 750 mg, UNK
  5. METHOTREXATE [Concomitant]
     Dosage: UNK
  6. HYDROCODONE W/APAP                 /00607101/ [Concomitant]
     Dosage: UNK
  7. FOLIC ACID [Concomitant]
     Dosage: 20 mg, UNK
  8. RIFAMPIN [Concomitant]
     Dosage: 300 mg, UNK

REACTIONS (2)
  - Fatigue [Unknown]
  - Injection site pain [Unknown]
